FAERS Safety Report 13244828 (Version 2)
Quarter: 2017Q2

REPORT INFORMATION
  Report Type: Report from Study
  Country: US (occurrence: US)
  Receive Date: 20170217
  Receipt Date: 20170509
  Transmission Date: 20170830
  Serious: Yes (Hospitalization)
  Sender: FDA-Public Use
  Company Number: US-EMD SERONO-E2B_80059679

PATIENT
  Age: 59 Year
  Sex: Female

DRUGS (2)
  1. REBIF [Suspect]
     Active Substance: INTERFERON BETA-1A
     Route: 058
     Dates: start: 20170202, end: 20170202
  2. REBIF [Suspect]
     Active Substance: INTERFERON BETA-1A
     Indication: MULTIPLE SCLEROSIS
     Route: 058
     Dates: start: 20170110

REACTIONS (4)
  - Amnesia [Recovered/Resolved]
  - Confusional state [Recovered/Resolved]
  - Disorganised speech [Recovered/Resolved]
  - Drug intolerance [Unknown]

NARRATIVE: CASE EVENT DATE: 20170202
